FAERS Safety Report 14814537 (Version 1)
Quarter: 2018Q2

REPORT INFORMATION
  Report Type: Spontaneous
  Country: US (occurrence: US)
  Receive Date: 20180417
  Receipt Date: 20180417
  Transmission Date: 20180711
  Serious: Yes (Other)
  Sender: FDA-Public Use
  Company Number: None

PATIENT
  Age: 18 Year
  Sex: Female
  Weight: 58.97 kg

DRUGS (6)
  1. NEOSPORIN [Concomitant]
     Active Substance: BACITRACIN ZINC\NEOMYCIN SULFATE\POLYMYXIN B SULFATE
  2. MELOXICAM. [Concomitant]
     Active Substance: MELOXICAM
  3. ABILIFY [Concomitant]
     Active Substance: ARIPIPRAZOLE
  4. DEPAKOTE [Suspect]
     Active Substance: DIVALPROEX SODIUM
  5. DEPO-PROVERA [Concomitant]
     Active Substance: MEDROXYPROGESTERONE ACETATE
  6. HYDROCORTIZONE CREAM [Concomitant]

REACTIONS (1)
  - Pain [None]

NARRATIVE: CASE EVENT DATE: 20010101
